FAERS Safety Report 5795270-1 (Version None)
Quarter: 2008Q2

REPORT INFORMATION
  Report Type: 
  Country: None (occurrence: None)
  Receive Date: 20080626
  Receipt Date: 20080617
  Transmission Date: 20081010
  Serious: Yes (Other)
  Sender: FDA-Public Use
  Company Number: 2008009222

PATIENT
  Age: 46 Year
  Sex: Male
  Weight: 106.5953 kg

DRUGS (3)
  1. LUBRIDERM DAILY MOISTURE (NO ACTIVE INGREDIENT) [Suspect]
     Indication: DRY SKIN
     Dosage: 1 TEASPOON ONCE DAILY (1 IN 1 D), TOPICAL
     Route: 061
     Dates: start: 19870101
  2. MOMETASONE FUROATE [Concomitant]
  3. OMEPRAZOLE [Concomitant]

REACTIONS (6)
  - DERMATITIS CONTACT [None]
  - EXPIRED DRUG ADMINISTERED [None]
  - OEDEMA PERIPHERAL [None]
  - PAIN IN EXTREMITY [None]
  - SKIN FISSURES [None]
  - URTICARIA [None]
